FAERS Safety Report 11585052 (Version 1)
Quarter: 2015Q4

REPORT INFORMATION
  Report Type: Spontaneous
  Country: CH (occurrence: CH)
  Receive Date: 20151001
  Receipt Date: 20151001
  Transmission Date: 20160304
  Serious: Yes (Hospitalization)
  Sender: FDA-Public Use
  Company Number: CH-CIPLA LTD.-2015CH07659

PATIENT

DRUGS (4)
  1. LAMIVUDINE/ZIDOVUDINE [Suspect]
     Active Substance: LAMIVUDINE\ZIDOVUDINE
     Dosage: ZIDOVUDINE 100 MG/ LAMIVUDINE 150 MG, BID (LOW-DOSE ARM)
     Route: 065
  2. LAMIVUDINE/ZIDOVUDINE [Suspect]
     Active Substance: LAMIVUDINE\ZIDOVUDINE
     Indication: HIV INFECTION
     Dosage: ZIDOVUDINE 300 MG/ LAMIVUDINE 150 MG, BID (STANDARD-DOSE ARM)
     Route: 065
  3. NEVIRAPINE. [Suspect]
     Active Substance: NEVIRAPINE
     Dosage: 200 MG, BID (LOW-DOSE ARM)
     Route: 065
  4. NEVIRAPINE. [Suspect]
     Active Substance: NEVIRAPINE
     Indication: HIV INFECTION
     Dosage: 200 MG, BID (STANDARD-DOSE ARM)
     Route: 065

REACTIONS (1)
  - Pericarditis tuberculous [Unknown]
